FAERS Safety Report 23721933 (Version 1)
Quarter: 2024Q2

REPORT INFORMATION
  Report Type: Spontaneous
  Country: GB (occurrence: GB)
  Receive Date: 20240409
  Receipt Date: 20240409
  Transmission Date: 20240715
  Serious: Yes (Other)
  Sender: FDA-Public Use
  Company Number: None

PATIENT
  Age: 17 Year
  Sex: Female
  Weight: 70 kg

DRUGS (5)
  1. FLUOXETINE [Suspect]
     Active Substance: FLUOXETINE HYDROCHLORIDE
     Indication: Adverse drug reaction
     Dosage: 40MG; ;
     Dates: start: 20240228
  2. IRON [Concomitant]
     Active Substance: IRON
     Indication: Anaemia
  3. LANSOPRAZOLE [Concomitant]
     Active Substance: LANSOPRAZOLE
     Indication: Adverse drug reaction
  4. MELATONIN [Concomitant]
     Active Substance: MELATONIN
     Indication: Adverse drug reaction
  5. PROMETHAZINE [Concomitant]
     Active Substance: PROMETHAZINE HYDROCHLORIDE
     Indication: Adverse drug reaction

REACTIONS (1)
  - Urinary retention [Recovered/Resolved]

NARRATIVE: CASE EVENT DATE: 20240308
